FAERS Safety Report 17064574 (Version 2)
Quarter: 2020Q3

REPORT INFORMATION
  Report Type: Report from Study
  Country: IN (occurrence: IN)
  Receive Date: 20191122
  Receipt Date: 20191213
  Transmission Date: 20201105
  Serious: Yes (Hospitalization, Other)
  Sender: FDA-Public Use
  Company Number: NVSC2019IN039775

PATIENT
  Age: 60 Year
  Sex: Male

DRUGS (37)
  1. BLINDED ACZ885 [Suspect]
     Active Substance: CANAKINUMAB
     Indication: NON-SMALL CELL LUNG CANCER
     Dosage: CODE NOT BROKEN
     Route: 058
     Dates: start: 20191010
  2. BISACODYL. [Concomitant]
     Active Substance: BISACODYL
     Indication: PROPHYLAXIS
     Dosage: 3 TABLESPOON FULL AT NIGHT
     Route: 048
     Dates: start: 20191011
  3. GRANISETRON [Concomitant]
     Active Substance: GRANISETRON
     Indication: ANTIEMETIC SUPPORTIVE CARE
     Dosage: 3 MG, ONCE/SINGLE
     Route: 042
     Dates: start: 20191024, end: 20191024
  4. CEFTUM [CEFUROXIME AXETIL] [Concomitant]
     Active Substance: CEFUROXIME AXETIL
     Indication: PYREXIA
     Dosage: 500 MG, BID
     Route: 048
     Dates: start: 20191028, end: 20191030
  5. PLACEBO [Suspect]
     Active Substance: UNSPECIFIED INGREDIENT
     Indication: NON-SMALL CELL LUNG CANCER
     Dosage: CODE NOT BROKEN
     Route: 058
     Dates: start: 20191010
  6. ULTRACET [Concomitant]
     Active Substance: ACETAMINOPHEN\TRAMADOL HYDROCHLORIDE
     Indication: PAIN IN EXTREMITY
     Dosage: 37.5 MG  OF TRAMADOL+375 MG OF ACETAMINOPHEN TID
     Route: 048
     Dates: start: 20191010
  7. PENTAMAX D [Concomitant]
     Indication: PROPHYLAXIS
     Dosage: 10 MG, QD
     Route: 048
     Dates: start: 20191011
  8. AVIL [Concomitant]
     Active Substance: PHENIRAMINE
     Dosage: 2 ML, ONCE/SINGLE
     Route: 042
     Dates: start: 20191107, end: 20191107
  9. NORMAL SALINE [Concomitant]
     Active Substance: SODIUM CHLORIDE
     Indication: GENERAL PHYSICAL CONDITION
     Dosage: 500 ML, Q3H
     Route: 042
     Dates: start: 20191024, end: 20191024
  10. REDOTIL [Concomitant]
     Indication: DIARRHOEA
     Dosage: 100 MG, PRN
     Route: 048
     Dates: start: 20191108
  11. BLINDED NO TREATMENT RECEIVED [Suspect]
     Active Substance: INVESTIGATIONAL PRODUCT
     Indication: NON-SMALL CELL LUNG CANCER
     Dosage: CODE NOT BROKEN
     Route: 058
     Dates: start: 20191010
  12. FOLIC ACID. [Concomitant]
     Active Substance: FOLIC ACID
     Indication: GENERAL PHYSICAL CONDITION
     Dosage: 50 MG, QD
     Route: 048
     Dates: start: 20191021, end: 20191030
  13. AVIL [Concomitant]
     Active Substance: PHENIRAMINE
     Dosage: 2 ML, ONCE/SINGLE
     Route: 042
     Dates: start: 20191118, end: 20191118
  14. RANITIDINE. [Concomitant]
     Active Substance: RANITIDINE
     Dosage: 50 MG, ONCE/SINGLE
     Route: 042
     Dates: start: 20191031, end: 20191031
  15. NICIP PLUS [Concomitant]
     Indication: PYREXIA
     Dosage: 100 MG, BID
     Route: 048
     Dates: start: 20191028, end: 20191030
  16. PEMBROLIZUMAB. [Suspect]
     Active Substance: PEMBROLIZUMAB
     Indication: NON-SMALL CELL LUNG CANCER
     Dosage: 200 MG, ONCE/SINGLE
     Route: 042
     Dates: start: 20191010
  17. FAROPENEM [Concomitant]
     Active Substance: FAROPENEM
     Indication: ANTIBIOTIC PROPHYLAXIS
     Dosage: 200 MG, BID
     Route: 048
     Dates: start: 20191021, end: 20191023
  18. GRANISETRON [Concomitant]
     Active Substance: GRANISETRON
     Dosage: 1 MG, BID
     Route: 048
     Dates: start: 20191101, end: 20191103
  19. GRANISETRON [Concomitant]
     Active Substance: GRANISETRON
     Dosage: 1 MG, BID
     Route: 048
     Dates: start: 20191108
  20. AVIL [Concomitant]
     Active Substance: PHENIRAMINE
     Dosage: 2 ML, ONCE/SINGLE
     Route: 042
     Dates: start: 20191031, end: 20191031
  21. AVIL [Concomitant]
     Active Substance: PHENIRAMINE
     Dosage: 2 ML, ONCE/SINGLE
     Route: 065
     Dates: start: 20191118, end: 20191118
  22. RANITIDINE. [Concomitant]
     Active Substance: RANITIDINE
     Dosage: 50 MG, ONCE/SINGLE
     Route: 042
     Dates: start: 20191107, end: 20191107
  23. RANITIDINE. [Concomitant]
     Active Substance: RANITIDINE
     Dosage: 50 MG, ONCE/SINGLE
     Route: 042
     Dates: start: 20191118, end: 20191118
  24. NORMAL SALINE [Concomitant]
     Active Substance: SODIUM CHLORIDE
     Indication: PROPHYLAXIS
     Dosage: 500 ML, Q3H
     Route: 042
     Dates: start: 20191118, end: 20191118
  25. CARBOPLATIN. [Suspect]
     Active Substance: CARBOPLATIN
     Indication: NON-SMALL CELL LUNG CANCER METASTATIC
     Dosage: 715 MG, ONCE/SINGLE
     Route: 042
     Dates: start: 20191010
  26. TRYPTOMER [Concomitant]
     Active Substance: AMITRIPTYLINE
     Indication: PAIN IN EXTREMITY
     Dosage: 10 MG, BID
     Route: 048
     Dates: start: 20191010
  27. RANITIDINE. [Concomitant]
     Active Substance: RANITIDINE
     Indication: PREMEDICATION
     Dosage: 50 MG, ONCE/SINGLE
     Route: 042
     Dates: start: 20191024, end: 20191024
  28. BLINDED ACZ885 [Suspect]
     Active Substance: CANAKINUMAB
     Indication: NON-SMALL CELL LUNG CANCER
     Dosage: CODE NOT BROKEN
     Route: 058
     Dates: start: 20191010
  29. PACLITAXEL. [Suspect]
     Active Substance: PACLITAXEL
     Indication: NON-SMALL CELL LUNG CANCER METASTATIC
     Dosage: 192 MG, QW
     Route: 042
     Dates: start: 20191010
  30. TRENAXA [Concomitant]
     Active Substance: TRANEXAMIC ACID
     Indication: HAEMOPTYSIS
     Dosage: 500 MG, TID
     Route: 048
     Dates: start: 20191018, end: 20191029
  31. ZYTEE [Concomitant]
     Indication: GENERAL PHYSICAL CONDITION
     Dosage: TID FOR THREE DAYS
     Route: 048
     Dates: start: 20191021, end: 20191027
  32. ENDACE [Concomitant]
     Active Substance: MEGESTROL ACETATE
     Indication: GENERAL PHYSICAL CONDITION
     Dosage: 40 MG, QD
     Route: 048
     Dates: start: 20191021
  33. GRANISETRON [Concomitant]
     Active Substance: GRANISETRON
     Dosage: 3 MG, QD
     Route: 042
     Dates: start: 20191107, end: 20191107
  34. AVIL [Concomitant]
     Active Substance: PHENIRAMINE
     Indication: ANTIALLERGIC THERAPY
     Dosage: 2 ML, ONCE/SINGLE
     Route: 042
     Dates: start: 20191024, end: 20191024
  35. GRANISETRON [Concomitant]
     Active Substance: GRANISETRON
     Dosage: 3 MG, ONCE/SINGLE
     Route: 042
     Dates: start: 20191031, end: 20191031
  36. METHYLCOBALAMIN. [Concomitant]
     Active Substance: METHYLCOBALAMIN
     Indication: GENERAL PHYSICAL CONDITION
     Dosage: 1 DF, QD FOR 7 DAYS
     Route: 065
     Dates: start: 20171128, end: 20191204
  37. SPORLAC [Concomitant]
     Indication: DIARRHOEA
     Dosage: SACHET BID
     Route: 048
     Dates: start: 20191108

REACTIONS (2)
  - Anaemia [Not Recovered/Not Resolved]
  - Chronic obstructive pulmonary disease [Not Recovered/Not Resolved]

NARRATIVE: CASE EVENT DATE: 20191113
